FAERS Safety Report 15121913 (Version 1)
Quarter: 2018Q3

REPORT INFORMATION
  Report Type: Other
  Country: PL (occurrence: PL)
  Receive Date: 20180709
  Receipt Date: 20180709
  Transmission Date: 20181010
  Serious: Yes (Hospitalization, Other)
  Sender: FDA-Public Use
  Company Number: PL-ACTELION-A-CH2018-174699

PATIENT
  Age: 29 Year
  Sex: Female

DRUGS (2)
  1. EPOPROSTENOL SODIUM. [Suspect]
     Active Substance: EPOPROSTENOL SODIUM
     Indication: PULMONARY ARTERIAL HYPERTENSION
     Dosage: UNK
     Route: 042
  2. NITRIC OXIDE. [Concomitant]
     Active Substance: NITRIC OXIDE

REACTIONS (12)
  - Coagulopathy [Unknown]
  - Transfusion [Unknown]
  - Pregnancy [Unknown]
  - Cerebral ischaemia [Unknown]
  - Laparotomy [Unknown]
  - Vaginal haemorrhage [Unknown]
  - Haemorrhagic diathesis [Unknown]
  - Thrombocytopenia [Unknown]
  - Haemodynamic instability [Unknown]
  - Caesarean section [Unknown]
  - Paresis [Unknown]
  - Haemorrhage [Unknown]

NARRATIVE: CASE EVENT DATE: 2017
